FAERS Safety Report 23345525 (Version 2)
Quarter: 2024Q1

REPORT INFORMATION
  Report Type: Report from Study
  Country: US (occurrence: US)
  Receive Date: 20231228
  Receipt Date: 20240126
  Transmission Date: 20240409
  Serious: Yes (Other)
  Sender: FDA-Public Use
  Company Number: US-UCBSA-2023044614

PATIENT
  Sex: Female
  Weight: 96.145 kg

DRUGS (10)
  1. CERTOLIZUMAB PEGOL [Suspect]
     Active Substance: CERTOLIZUMAB PEGOL
     Indication: Rheumatoid arthritis
     Dosage: 400 MILLIGRAM, EV 4 WEEKS
     Route: 058
     Dates: start: 20230807, end: 20231012
  2. DUREZOL [Concomitant]
     Active Substance: DIFLUPREDNATE
     Indication: Product used for unknown indication
     Dosage: 0.05%, 1 DROP, 4X/DAY (QID), INTO LEFT EYE
     Route: 047
     Dates: start: 20231017
  3. MIEBO [Concomitant]
     Active Substance: PERFLUOROHEXYLOCTANE
     Indication: Product used for unknown indication
     Dosage: 1 DROP, 4X/DAY (QID), INTO AFFECTED EYE
     Route: 047
     Dates: start: 20231003
  4. ZESTRIL [Concomitant]
     Active Substance: LISINOPRIL
     Indication: Product used for unknown indication
     Dosage: 1 TABLET, ONCE DAILY (QD)
     Route: 048
  5. CELEBREX [Concomitant]
     Active Substance: CELECOXIB
     Indication: Product used for unknown indication
     Dosage: 1 CAPSULE, ONCE DAILY (QD)
     Route: 048
  6. DIAZEPAM [Concomitant]
     Active Substance: DIAZEPAM
     Indication: Product used for unknown indication
     Dosage: 1 MILLILITER, 2X/DAY (BID)
     Route: 048
  7. IMVEXXY [Concomitant]
     Active Substance: ESTRADIOL
     Indication: Product used for unknown indication
     Dosage: 1 VAGINAL INSERT, 2X/WEEK (EVERY 3 OR 4 DAY)
     Route: 067
  8. NEURONTIN [Concomitant]
     Active Substance: GABAPENTIN
     Indication: Product used for unknown indication
     Dosage: 3 CAPSULE, 2X/DAY (BID)
     Route: 048
  9. ROBAXIN [Concomitant]
     Active Substance: METHOCARBAMOL
     Indication: Product used for unknown indication
     Dosage: 10 MILLIGRAM, EVERY 8 HOURS AS NEEDED
     Route: 030
  10. SIMBRINZA [Concomitant]
     Active Substance: BRIMONIDINE TARTRATE\BRINZOLAMIDE
     Indication: Mydriasis
     Dosage: UNK, 2X/DAY (BID) (BOTH EYES)
     Route: 047

REACTIONS (16)
  - Malaise [Not Recovered/Not Resolved]
  - Uveitis [Unknown]
  - Iridocyclitis [Not Recovered/Not Resolved]
  - Cataract nuclear [Unknown]
  - Abdominal pain upper [Not Recovered/Not Resolved]
  - Fatigue [Not Recovered/Not Resolved]
  - Migraine [Recovered/Resolved]
  - Headache [Unknown]
  - Dry eye [Not Recovered/Not Resolved]
  - Intraocular pressure increased [Not Recovered/Not Resolved]
  - Foreign body sensation in eyes [Not Recovered/Not Resolved]
  - Corneal deposits [Not Recovered/Not Resolved]
  - Photosensitivity reaction [Unknown]
  - Vitreous opacities [Unknown]
  - Therapeutic response shortened [Unknown]
  - Incorrect dose administered [Unknown]

NARRATIVE: CASE EVENT DATE: 20230101
